FAERS Safety Report 16070976 (Version 2)
Quarter: 2020Q1

REPORT INFORMATION
  Report Type: Spontaneous
  Country: PL (occurrence: PL)
  Receive Date: 20190314
  Receipt Date: 20200106
  Transmission Date: 20200409
  Serious: Yes (Death, Other)
  Sender: FDA-Public Use
  Company Number: PHHY2019PL057044

PATIENT
  Age: 25 Year
  Sex: Male

DRUGS (4)
  1. CYCLOPHOSPHAMIDE. [Suspect]
     Active Substance: CYCLOPHOSPHAMIDE
     Indication: NEPHROBLASTOMA
     Dosage: 450 MG/M2 DURING DAYS 1-3, IN 28 DAYS INTERVALS
     Route: 065
     Dates: start: 200812
  2. DOXORUBICIN HYDROCHLORIDE. [Suspect]
     Active Substance: DOXORUBICIN HYDROCHLORIDE
     Indication: NEPHROBLASTOMA
     Dosage: 50 MG/M2, ON DAY ONE
     Route: 065
  3. VEPESID [Suspect]
     Active Substance: ETOPOSIDE
     Indication: NEPHROBLASTOMA
     Dosage: ON DAY 15-17 IN 28 DAYS INTERVALS.
     Route: 065
     Dates: start: 200812
  4. CARBOPLATIN. [Suspect]
     Active Substance: CARBOPLATIN
     Indication: NEPHROBLASTOMA
     Dosage: ON DAY 15-17 IN 28 DAYS INTERVALS.
     Route: 065
     Dates: start: 200812

REACTIONS (4)
  - Neutropenia [Unknown]
  - Disease progression [Fatal]
  - Haematology test abnormal [Unknown]
  - Drug resistance [Unknown]
